FAERS Safety Report 7551474-9 (Version None)
Quarter: 2011Q2

REPORT INFORMATION
  Report Type: 
  Country: None (occurrence: None)
  Receive Date: 20110616
  Receipt Date: 20110606
  Transmission Date: 20111010
  Serious: Yes (Other)
  Sender: FDA-Public Use
  Company Number: PHHY2011US49388

PATIENT
  Sex: Female

DRUGS (17)
  1. DIOVAN [Concomitant]
     Dosage: UNK
  2. ASCORBIC ACID [Concomitant]
     Dosage: UNK
  3. BACLOFEN [Concomitant]
     Dosage: UNK
  4. XANAX [Concomitant]
     Dosage: UNK
  5. GUAIFENESIN [Concomitant]
     Dosage: UNK
  6. VITAMIN D [Concomitant]
     Dosage: UNK
  7. AMINO ACIDS [Concomitant]
     Dosage: UNK
  8. ALBUTEROL SULFATE AUTOHALER [Concomitant]
     Dosage: UNK
  9. MULTI-VITAMIN [Concomitant]
     Dosage: UNK
  10. GILENYA [Suspect]
     Indication: MULTIPLE SCLEROSIS
     Dosage: 0.5 MG, QD
     Route: 048
     Dates: start: 20110601
  11. VERPAMIL HCL [Concomitant]
     Dosage: UNK
  12. PRILOSEC [Concomitant]
     Dosage: UNK
  13. SYNTHROID [Concomitant]
     Dosage: UNK
  14. ADDERALL 10 [Concomitant]
     Dosage: UNK
  15. MILK THISTLE [Concomitant]
     Dosage: UNK
  16. SUDAFED 12 HOUR [Concomitant]
     Dosage: UNK
  17. LOVAZA [Concomitant]
     Dosage: UNK

REACTIONS (2)
  - UPPER RESPIRATORY TRACT INFECTION [None]
  - FUNGAL SKIN INFECTION [None]
